FAERS Safety Report 5808520-X (Version None)
Quarter: 2008Q3

REPORT INFORMATION
  Report Type: 
  Country: None (occurrence: None)
  Receive Date: 20080714
  Receipt Date: 20080703
  Transmission Date: 20090109
  Serious: Yes (Hospitalization, Other)
  Sender: FDA-Public Use
  Company Number: PHHO2007MX11119

PATIENT
  Sex: Female
  Weight: 64.2 kg

DRUGS (8)
  1. BLINDED ACLASTA/ZOLEDRONATE T29581+A+SOLINJ [Suspect]
     Indication: OSTEOPOROSIS POSTMENOPAUSAL
     Dosage: DOUBLE-BLIND
     Route: 042
     Dates: start: 20060516, end: 20060516
  2. BLINDED NO TREATMENT RECEIVED NOMED [Suspect]
     Indication: OSTEOPOROSIS POSTMENOPAUSAL
     Dosage: DOUBLE-BLIND
     Route: 042
     Dates: start: 20060516, end: 20060516
  3. BLINDED PLACEBO PLACEBO [Suspect]
     Indication: OSTEOPOROSIS POSTMENOPAUSAL
     Dosage: DOUBLE-BLIND
     Route: 042
     Dates: start: 20060516, end: 20060516
  4. CALCIUM [Concomitant]
     Indication: OSTEOPOROSIS POSTMENOPAUSAL
  5. VITAMIN D [Concomitant]
     Indication: OSTEOPOROSIS POSTMENOPAUSAL
  6. ENALAPRIL MALEATE [Concomitant]
     Indication: HYPERTENSION
     Route: 048
  7. INSULIN [Concomitant]
     Indication: DIABETES MELLITUS
     Route: 058
  8. BEZAFIBRATE [Concomitant]
     Indication: HYPERCHOLESTEROLAEMIA

REACTIONS (3)
  - FALL [None]
  - HUMERUS FRACTURE [None]
  - SURGERY [None]
